FAERS Safety Report 9177115 (Version 1)
Quarter: 2013Q1

REPORT INFORMATION
  Report Type: Report from Study
  Country: US (occurrence: US)
  Receive Date: 20130321
  Receipt Date: 20130321
  Transmission Date: 20140127
  Serious: No
  Sender: FDA-Public Use
  Company Number: US-VERTEX PHARMACEUTICALS INC.-2013-003865

PATIENT
  Age: 58 Year
  Sex: Male
  Weight: 87 kg

DRUGS (9)
  1. VX-950 (TELAPREVIR) [Suspect]
     Indication: HEPATITIS C
     Dosage: 750 MG, TID
     Route: 048
     Dates: start: 2012
  2. RIBAPAK [Suspect]
     Indication: HEPATITIS C
     Dosage: 600 MG, BID
     Dates: start: 2012
  3. PEGASYS [Suspect]
     Indication: HEPATITIS C
     Dosage: 180 ?G, QW
     Route: 058
     Dates: start: 2012
  4. AMLODIPINE BESYLATE [Concomitant]
     Dosage: 10 MG, QD
  5. GEMFIBROZIL [Concomitant]
     Dosage: 600 MG, QD
  6. ATENOLOL [Concomitant]
     Dosage: 100 MG, QD
  7. LISINOPRIL [Concomitant]
     Dosage: 20 MG, UNK
  8. LEVEMIR [Concomitant]
     Dosage: 100 UNITS/ ML
  9. METFORMIN HCL [Concomitant]
     Dosage: 1000 MG, BID

REACTIONS (6)
  - Hypotension [Unknown]
  - Dizziness [Unknown]
  - Nausea [Unknown]
  - Vomiting [Unknown]
  - Diarrhoea [Unknown]
  - Pruritus [Unknown]
